FAERS Safety Report 4370794-2 (Version None)
Quarter: 2004Q2

REPORT INFORMATION
  Report Type: 
  Country: None (occurrence: None)
  Receive Date: 20040604
  Receipt Date: 20040524
  Transmission Date: 20050107
  Serious: Yes (Hospitalization)
  Sender: FDA-Public Use
  Company Number: FR-BRISTOL-MYERS SQUIBB COMPANY-12595831

PATIENT
  Age: 68 Year
  Sex: Male

DRUGS (6)
  1. COAPROVEL TABS 300MG/12.5MG [Suspect]
     Indication: HYPERTENSION
     Route: 048
  2. IMOVANE [Suspect]
     Indication: SLEEP DISORDER
     Route: 048
  3. SEROPRAM [Suspect]
     Indication: ANXIETY
     Route: 048
  4. RIVOTRIL [Suspect]
  5. VASTAREL [Concomitant]
     Indication: DIZZINESS
  6. ALDACTONE [Concomitant]
     Indication: HYPERTENSION

REACTIONS (5)
  - FALL [None]
  - HEAD INJURY [None]
  - MALAISE [None]
  - STRESS SYMPTOMS [None]
  - WOUND [None]
